FAERS Safety Report 9394437 (Version 1)
Quarter: 2013Q3

REPORT INFORMATION
  Report Type: Spontaneous
  Country: US (occurrence: US)
  Receive Date: 20130711
  Receipt Date: 20130711
  Transmission Date: 20140515
  Serious: Yes (Other)
  Sender: FDA-Public Use
  Company Number: US-PFIZER INC-2013202603

PATIENT
  Age: 60 Year
  Sex: Female
  Weight: 138 kg

DRUGS (4)
  1. NEURONTIN [Suspect]
     Indication: NEUROPATHY PERIPHERAL
     Dosage: 300 MG, 2X/DAY
  2. GABAPENTIN [Suspect]
     Indication: NEUROPATHY PERIPHERAL
     Dosage: UNK
  3. INSULIN [Concomitant]
     Indication: DIABETES MELLITUS
     Dosage: UNK
  4. METFORMIN [Concomitant]
     Indication: DIABETES MELLITUS
     Dosage: UNK

REACTIONS (12)
  - Weight increased [Unknown]
  - Eating disorder [Unknown]
  - Sleep talking [Unknown]
  - Oropharyngeal pain [Unknown]
  - Local swelling [Unknown]
  - Joint swelling [Unknown]
  - Erythema [Unknown]
  - Limb discomfort [Unknown]
  - Sleep disorder [Unknown]
  - Dysphonia [Unknown]
  - Discomfort [Unknown]
  - Dyspnoea [Unknown]
